FAERS Safety Report 10614409 (Version 2)
Quarter: 2014Q4

REPORT INFORMATION
  Report Type: Spontaneous
  Country: IT (occurrence: IT)
  Receive Date: 20141129
  Receipt Date: 20141217
  Transmission Date: 20150529
  Serious: Yes (Other)
  Sender: FDA-Public Use
  Company Number: IT-AUROBINDO-AUR-APL-2014-12592

PATIENT
  Age: 68 Year
  Sex: Female

DRUGS (1)
  1. PAROXETINE 20MG [Suspect]
     Active Substance: PAROXETINE\PAROXETINE HYDROCHLORIDE
     Indication: PRODUCT USED FOR UNKNOWN INDICATION
     Dosage: 20 MG, DAILY
     Route: 065

REACTIONS (14)
  - Disturbance in attention [Recovered/Resolved]
  - Irritability [Recovered/Resolved]
  - Restlessness [Recovered/Resolved]
  - Tremor [Recovered/Resolved]
  - Libido increased [Recovered/Resolved]
  - Depressed mood [Recovering/Resolving]
  - Drug interaction [Recovered/Resolved]
  - Tremor [None]
  - Apallic syndrome [Recovered/Resolved]
  - Serotonin syndrome [None]
  - Sleep disorder [Recovered/Resolved]
  - Hyperhidrosis [Recovered/Resolved]
  - Accidental overdose [None]
  - Decreased appetite [Recovered/Resolved]
